FAERS Safety Report 7809521-2 (Version None)
Quarter: 2011Q4

REPORT INFORMATION
  Report Type: 
  Country: None (occurrence: None)
  Receive Date: 20111012
  Receipt Date: 20111003
  Transmission Date: 20120403
  Serious: Yes (Other)
  Sender: FDA-Public Use
  Company Number: PHFR2011GB05010

PATIENT
  Sex: Female
  Weight: 70.55 kg

DRUGS (7)
  1. LAMOTRIGINE [Concomitant]
     Indication: MOOD SWINGS
     Dosage: 300 MG/DAY
     Route: 048
  2. LEVOTHYROXINE SODIUM [Concomitant]
     Indication: HYPOTHYROIDISM
     Dosage: 100 MG/DAY
     Route: 048
  3. OMEPRAZOLE [Concomitant]
     Indication: PEPTIC ULCER
     Dosage: 20 MG/DAY
     Route: 048
  4. TIOTROPIUM [Concomitant]
     Dosage: AS NEEDED
  5. CLOZAPINE [Suspect]
     Indication: SCHIZOPHRENIA, PARANOID TYPE
     Dosage: 500 MG/DAY
     Route: 048
     Dates: start: 20040715
  6. FLUTICASONE PROPIONATE [Concomitant]
  7. BETAMETHASONE [Concomitant]

REACTIONS (3)
  - THROMBOCYTOPENIA [None]
  - CHRONIC OBSTRUCTIVE PULMONARY DISEASE [None]
  - IRON DEFICIENCY ANAEMIA [None]
